FAERS Safety Report 7964010-X (Version None)
Quarter: 2011Q4

REPORT INFORMATION
  Report Type: 
  Country: None (occurrence: None)
  Receive Date: 20111208
  Receipt Date: 20111028
  Transmission Date: 20120403
  Serious: No
  Sender: FDA-Public Use
  Company Number: US-BAYER-2011-106620

PATIENT
  Age: 72 Year
  Sex: Male
  Weight: 90.703 kg

DRUGS (3)
  1. ANTIHYPERTENSIVES [Concomitant]
  2. ALEVE (CAPLET) [Suspect]
     Indication: ARTHRITIS
     Dosage: 1 DF, PRN
     Route: 048
     Dates: start: 20111001, end: 20111001
  3. ALEVE (CAPLET) [Suspect]
     Dosage: 1 DF, PRN
     Route: 048
     Dates: start: 20070101, end: 20111001

REACTIONS (3)
  - NO ADVERSE EVENT [None]
  - FEELING HOT [None]
  - ORAL DISCOMFORT [None]
